FAERS Safety Report 20137687 (Version 1)
Quarter: 2021Q4

REPORT INFORMATION
  Report Type: Spontaneous
  Country: US (occurrence: US)
  Receive Date: 20211202
  Receipt Date: 20211202
  Transmission Date: 20220303
  Serious: No
  Sender: FDA-Public Use
  Company Number: US-AMGEN-USASP2021186447

PATIENT
  Age: 79 Year
  Sex: Female

DRUGS (4)
  1. REPATHA [Suspect]
     Active Substance: EVOLOCUMAB
     Indication: Blood cholesterol abnormal
     Dosage: UNK UNK, Q2WK
     Route: 065
     Dates: start: 202103
  2. REPATHA [Suspect]
     Active Substance: EVOLOCUMAB
     Dosage: UNK UNK, Q3WK
     Route: 065
  3. LIPITOR [Concomitant]
     Active Substance: ATORVASTATIN CALCIUM
     Dosage: 10 MILLIGRAM, 3 TIMES/WK
     Route: 065
     Dates: end: 2021
  4. MIRALAX [Concomitant]
     Active Substance: POLYETHYLENE GLYCOL 3350
     Dosage: UNK, AS NECESSARY
     Route: 065

REACTIONS (10)
  - Off label use [Unknown]
  - Confusional state [Unknown]
  - Constipation [Unknown]
  - Mobility decreased [Unknown]
  - Pollakiuria [Unknown]
  - Muscle disorder [Unknown]
  - Pain in extremity [Recovered/Resolved]
  - Pain [Recovered/Resolved]
  - Abdominal distension [Unknown]
  - Back pain [Recovered/Resolved]

NARRATIVE: CASE EVENT DATE: 20210101
